FAERS Safety Report 23328419 (Version 1)
Quarter: 2023Q4

REPORT INFORMATION
  Report Type: Spontaneous
  Country: US (occurrence: US)
  Receive Date: 20231221
  Receipt Date: 20231221
  Transmission Date: 20240110
  Serious: No
  Sender: FDA-Public Use
  Company Number: US-ELI_LILLY_AND_COMPANY-US202312009479

PATIENT
  Age: 62 Year
  Sex: Female

DRUGS (3)
  1. VERZENIO [Suspect]
     Active Substance: ABEMACICLIB
     Indication: Breast cancer
     Dosage: 150 MG, BID
     Route: 065
     Dates: start: 20230424
  2. VERZENIO [Suspect]
     Active Substance: ABEMACICLIB
     Dosage: 100 MG, BID
     Route: 065
     Dates: start: 202306
  3. AROMASIN [Concomitant]
     Active Substance: EXEMESTANE
     Indication: Breast cancer
     Dosage: UNK UNK, DAILY
     Route: 065
     Dates: start: 20230424

REACTIONS (14)
  - Skin exfoliation [Unknown]
  - Palpitations [Recovered/Resolved]
  - Mean cell volume increased [Unknown]
  - Haemoglobin increased [Unknown]
  - Cognitive disorder [Unknown]
  - Hypothyroidism [Unknown]
  - Dry skin [Unknown]
  - Pallor [Unknown]
  - Pneumonitis [Unknown]
  - Red blood cell count decreased [Unknown]
  - White blood cell count decreased [Unknown]
  - Dysgeusia [Unknown]
  - Dizziness [Unknown]
  - Neutropenia [Unknown]

NARRATIVE: CASE EVENT DATE: 20231123
